FAERS Safety Report 7201397-X (Version None)
Quarter: 2010Q4

REPORT INFORMATION
  Report Type: 
  Country: None (occurrence: None)
  Receive Date: 20101216
  Receipt Date: 20101209
  Transmission Date: 20110411
  Serious: Yes (Life-Threatening, Hospitalization, Disabling)
  Sender: FDA-Public Use
  Company Number: 2006-150936-NL

PATIENT
  Age: 18 Year
  Sex: Female
  Weight: 48 kg

DRUGS (2)
  1. DESOGESTREL AND ETHINYL ESTRADIOL [Suspect]
     Indication: CONTRACEPTION
     Dosage: 1 DF;QD;PO
     Route: 048
     Dates: start: 19960910, end: 19981101
  2. AMOXIL [Concomitant]

REACTIONS (7)
  - CALCINOSIS [None]
  - DERMATITIS [None]
  - MIGRAINE WITH AURA [None]
  - MUSCULOSKELETAL PAIN [None]
  - NECK PAIN [None]
  - RAYNAUD'S PHENOMENON [None]
  - SJOGREN'S SYNDROME [None]
